FAERS Safety Report 20506523 (Version 1)
Quarter: 2022Q1

REPORT INFORMATION
  Report Type: Spontaneous
  Country: NO (occurrence: NO)
  Receive Date: 20220223
  Receipt Date: 20220223
  Transmission Date: 20220423
  Serious: Yes (Disabling)
  Sender: FDA-Public Use
  Company Number: None

PATIENT
  Age: 43 Year
  Sex: Female
  Weight: 70 kg

DRUGS (2)
  1. MODAFINIL [Suspect]
     Active Substance: MODAFINIL
     Indication: Hypersomnia
     Dosage: ADDITIONAL INFO: N06BA07 - MODAFINIL -SUBTANCE NAME : MODAFINIL
     Route: 048
     Dates: end: 2019
  2. FLUVASTATIN SODIUM [Concomitant]
     Active Substance: FLUVASTATIN SODIUM
     Indication: Hypersomnia
     Dosage: ADDITIONAL INFO: C10AA04 - FLUVASTATIN -SUBTANCE NAME : FLUVASTATIN ,
     Dates: end: 2019

REACTIONS (1)
  - Feeling cold [Not Recovered/Not Resolved]
